FAERS Safety Report 8605507-9 (Version None)
Quarter: 2012Q3

REPORT INFORMATION
  Report Type: 
  Country: None (occurrence: None)
  Receive Date: 20120820
  Receipt Date: 20120207
  Transmission Date: 20120928
  Serious: No
  Sender: FDA-Public Use
  Company Number: US-MYLANLABS-2012S1002916

PATIENT
  Age: 51 Year
  Sex: Female

DRUGS (2)
  1. DICLOFENAC POTASSIUM [Suspect]
     Indication: MIGRAINE
     Route: 048
     Dates: start: 20120124
  2. DICLOFENAC POTASSIUM [Suspect]
     Route: 048
     Dates: start: 20120124

REACTIONS (5)
  - DRUG INEFFECTIVE FOR UNAPPROVED INDICATION [None]
  - GINGIVAL SWELLING [None]
  - TOOTHACHE [None]
  - GINGIVAL ERYTHEMA [None]
  - MIGRAINE [None]
